FAERS Safety Report 6550630-6 (Version None)
Quarter: 2010Q1

REPORT INFORMATION
  Report Type: 
  Country: None (occurrence: None)
  Receive Date: 20100121
  Receipt Date: 20100111
  Transmission Date: 20100710
  Serious: Yes (Death)
  Sender: FDA-Public Use
  Company Number: 004551

PATIENT
  Age: 28 Year
  Sex: Female

DRUGS (9)
  1. ALPRAZOLAM [Suspect]
  2. QUETIAPINE [Suspect]
  3. BENZODIAZEPINE DERIVATIVES [Suspect]
  4. ETHANOL [Suspect]
  5. ATENOLOL [Suspect]
  6. PREGABALIN [Suspect]
  7. PHENOBARBITAL [Concomitant]
  8. ZOLPIDEM [Concomitant]
  9. LORAZEPAM [Concomitant]

REACTIONS (5)
  - APNOEA [None]
  - CARDIAC ARREST [None]
  - COMPLETED SUICIDE [None]
  - OVERDOSE [None]
  - PULSE ABSENT [None]
